FAERS Safety Report 19015005 (Version 3)
Quarter: 2021Q3

REPORT INFORMATION
  Report Type: Report from Study
  Country: GB (occurrence: GB)
  Receive Date: 20210316
  Receipt Date: 20210730
  Transmission Date: 20211014
  Serious: Yes (Other)
  Sender: FDA-Public Use
  Company Number: GB-SAMSUNG BIOEPIS-SB-2021-05833

PATIENT
  Age: 42 Year
  Sex: Male

DRUGS (2)
  1. PREDNISOLONE. [Concomitant]
     Active Substance: PREDNISOLONE
     Indication: PRODUCT USED FOR UNKNOWN INDICATION
     Dosage: UNKNOWN
     Route: 065
  2. IMRALDI [Suspect]
     Active Substance: ADALIMUMAB
     Indication: CROHN^S DISEASE
     Route: 058

REACTIONS (12)
  - COVID-19 [Unknown]
  - Pain [Unknown]
  - Nocturia [Unknown]
  - Crohn^s disease [Unknown]
  - Arthralgia [Unknown]
  - Stress [Recovering/Resolving]
  - Poor quality sleep [Unknown]
  - Peripheral swelling [Unknown]
  - Dehydration [Unknown]
  - Diarrhoea [Unknown]
  - Drug ineffective [Unknown]
  - Impaired quality of life [Recovering/Resolving]
